FAERS Safety Report 8491144-6 (Version None)
Quarter: 2012Q2

REPORT INFORMATION
  Report Type: 
  Country: None (occurrence: None)
  Receive Date: 20120420
  Receipt Date: 20120216
  Transmission Date: 20120825
  Serious: Yes (Other)
  Sender: FDA-Public Use
  Company Number: 2012P1005277

PATIENT
  Age: 69 Year
  Sex: Male
  Weight: 106.5953 kg

DRUGS (5)
  1. PRILOSEC [Concomitant]
  2. LISINOPRIL [Concomitant]
  3. LOSARTAN POTASSIUM [Suspect]
     Indication: HYPERTENSION
     Dosage: 100 MG;QD;PO
     Route: 048
     Dates: start: 20120110
  4. COREG [Concomitant]
  5. MEXICAM [Concomitant]

REACTIONS (3)
  - AURA [None]
  - SYNCOPE [None]
  - BLOOD SODIUM DECREASED [None]
